FAERS Safety Report 6390241-9 (Version None)
Quarter: 2009Q4

REPORT INFORMATION
  Report Type: 
  Country: None (occurrence: None)
  Receive Date: 20091006
  Receipt Date: 20090929
  Transmission Date: 20100525
  Serious: Yes (Life-Threatening)
  Sender: FDA-Public Use
  Company Number: B0593363A

PATIENT
  Sex: Male
  Weight: 80 kg

DRUGS (2)
  1. AUGMENTIN '125' [Suspect]
     Indication: PHARYNGITIS
     Route: 065
     Dates: start: 20090629, end: 20090703
  2. IBRUPROFEN [Concomitant]
     Indication: PAIN
     Dosage: 2400MG PER DAY
     Route: 048
     Dates: start: 20090629, end: 20090703

REACTIONS (14)
  - ABDOMINAL DISCOMFORT [None]
  - CHROMATURIA [None]
  - DECREASED APPETITE [None]
  - DIARRHOEA [None]
  - DISABILITY [None]
  - FAECES PALE [None]
  - HEPATOMEGALY [None]
  - HEPATOTOXICITY [None]
  - JAUNDICE CHOLESTATIC [None]
  - NAUSEA [None]
  - PRURITUS [None]
  - PYREXIA [None]
  - SPLENOMEGALY [None]
  - WEIGHT DECREASED [None]
